FAERS Safety Report 8280804-8 (Version None)
Quarter: 2012Q2

REPORT INFORMATION
  Report Type: 
  Country: None (occurrence: None)
  Receive Date: 20120412
  Receipt Date: 20120406
  Transmission Date: 20120825
  Serious: Yes (Other)
  Sender: FDA-Public Use
  Company Number: JP-ABBOTT-12P-087-0922505-00

PATIENT
  Sex: Male

DRUGS (9)
  1. DIOVAN [Concomitant]
     Indication: PRODUCT USED FOR UNKNOWN INDICATION
     Dates: start: 20091201
  2. ARICEPT [Suspect]
     Dosage: UID/QD
     Route: 048
     Dates: start: 20120314, end: 20120320
  3. ARICEPT [Suspect]
     Indication: PRODUCT USED FOR UNKNOWN INDICATION
     Dosage: UID/QD
     Route: 048
     Dates: start: 20120211, end: 20120224
  4. URINORM [Concomitant]
     Indication: PRODUCT USED FOR UNKNOWN INDICATION
     Dates: start: 20091201
  5. METHYCOBAL [Concomitant]
     Indication: PRODUCT USED FOR UNKNOWN INDICATION
     Dates: start: 20110621
  6. CEFDINIR [Suspect]
     Indication: PRODUCT USED FOR UNKNOWN INDICATION
     Route: 048
     Dates: start: 20120211, end: 20120224
  7. ARICEPT [Suspect]
     Dosage: UID/QD
     Route: 048
     Dates: start: 20120225, end: 20120305
  8. LANDEL [Concomitant]
     Indication: PRODUCT USED FOR UNKNOWN INDICATION
     Dates: start: 20091201
  9. OPALMON [Concomitant]
     Indication: PRODUCT USED FOR UNKNOWN INDICATION
     Dates: start: 20110621

REACTIONS (1)
  - HYPERSENSITIVITY [None]
